FAERS Safety Report 17489032 (Version 1)
Quarter: 2020Q1

REPORT INFORMATION
  Report Type: Spontaneous
  Country: US (occurrence: US)
  Receive Date: 20200303
  Receipt Date: 20200303
  Transmission Date: 20200409
  Serious: No
  Sender: FDA-Public Use
  Company Number: US-PERRIGO-19US005152

PATIENT
  Age: 76 Year
  Sex: Male
  Weight: 46.71 kg

DRUGS (6)
  1. NAPROXEN SODIUM. [Suspect]
     Active Substance: NAPROXEN SODIUM
     Dosage: 220 MG, QD
     Route: 048
     Dates: start: 20190420, end: 20190423
  2. GINGER                             /01646602/ [Concomitant]
     Indication: ARTHRITIS
     Dosage: UNK
     Route: 065
     Dates: start: 201904
  3. LISINOPRIL. [Concomitant]
     Active Substance: LISINOPRIL
     Indication: HYPERTENSION
     Dosage: UNK
     Route: 065
     Dates: start: 1999
  4. NAPROXEN SODIUM. [Suspect]
     Active Substance: NAPROXEN SODIUM
     Indication: ARTHRALGIA
     Dosage: 220 MG, 1 TO 2 TIMES DAILY
     Route: 048
     Dates: start: 20190410, end: 20190419
  5. BIOFLAVONOIDS [Concomitant]
     Active Substance: BIOFLAVONOIDS
     Indication: THROMBOSIS
     Dosage: UNK
     Route: 065
     Dates: start: 201902
  6. AMLODIPINE [Concomitant]
     Active Substance: AMLODIPINE BESYLATE
     Indication: HYPERTENSION
     Dosage: UNK
     Route: 065
     Dates: start: 1999

REACTIONS (3)
  - Incorrect product administration duration [Recovered/Resolved]
  - Therapeutic product effect decreased [Unknown]
  - Constipation [Not Recovered/Not Resolved]

NARRATIVE: CASE EVENT DATE: 20190418
